FAERS Safety Report 8962767 (Version 1)
Quarter: 2012Q4

REPORT INFORMATION
  Report Type: 
  Country: BD (occurrence: BD)
  Receive Date: 20121214
  Receipt Date: 20121214
  Transmission Date: 20130627
  Serious: Yes (Death)
  Sender: FDA-Public Use
  Company Number: PHHY2012BD114972

PATIENT
  Age: 70 Year
  Sex: Female

DRUGS (1)
  1. EXELON PATCH [Suspect]
     Indication: DEMENTIA
     Dosage: 4.6 mg, per day
     Route: 062
     Dates: start: 201009, end: 201010

REACTIONS (1)
  - Cerebrovascular accident [Fatal]
